FAERS Safety Report 4472609-0 (Version None)
Quarter: 2004Q4

REPORT INFORMATION
  Report Type: 
  Country: None (occurrence: None)
  Receive Date: 20041008
  Receipt Date: 20040917
  Transmission Date: 20050328
  Serious: Yes (Hospitalization)
  Sender: FDA-Public Use
  Company Number: EWC040940750

PATIENT
  Age: 70 Year
  Sex: Male

DRUGS (9)
  1. PEMETREXED [Suspect]
     Indication: MESOTHELIOMA
     Dosage: 970 MG/1 OTHER
     Dates: start: 20040614
  2. CARBOPLATIN [Suspect]
     Indication: MESOTHELIOMA
     Dosage: 670 MG/1 OTHER
     Dates: start: 20040614
  3. ZOFRAN [Concomitant]
  4. NOVABAN (TROPISETRON HYDROCHLORIDE) [Concomitant]
  5. MEDROL [Concomitant]
  6. TEMESTA EXPIDET (LORAZEPAM) [Concomitant]
  7. PRIMPERAN ELIXIR [Concomitant]
  8. DEXAMETHASONE [Concomitant]
  9. FOLIC ACID [Concomitant]

REACTIONS (2)
  - ARRHYTHMIA SUPRAVENTRICULAR [None]
  - VENTRICULAR FLUTTER [None]
